FAERS Safety Report 7875546-4 (Version None)
Quarter: 2011Q4

REPORT INFORMATION
  Report Type: 
  Country: None (occurrence: None)
  Receive Date: 20111031
  Receipt Date: 20111028
  Transmission Date: 20120403
  Serious: Yes (Death)
  Sender: FDA-Public Use
  Company Number: PHHY2011AR95367

PATIENT
  Sex: Female

DRUGS (1)
  1. EXELON [Suspect]
     Indication: SENILE DEMENTIA

REACTIONS (6)
  - CARDIO-RESPIRATORY ARREST [None]
  - HYPOPHAGIA [None]
  - MALNUTRITION [None]
  - GENERAL PHYSICAL CONDITION ABNORMAL [None]
  - ABASIA [None]
  - DEHYDRATION [None]
